FAERS Safety Report 22238713 (Version 3)
Quarter: 2023Q2

REPORT INFORMATION
  Report Type: Spontaneous
  Country: CN (occurrence: CN)
  Receive Date: 20230421
  Receipt Date: 20230525
  Transmission Date: 20230722
  Serious: Yes (Death)
  Sender: FDA-Public Use
  Company Number: CN-BAYER-2023A054716

PATIENT
  Age: 62 Year
  Sex: Female

DRUGS (1)
  1. EYLEA [Suspect]
     Active Substance: AFLIBERCEPT
     Indication: Diabetic retinopathy
     Dosage: 0.05 ML, ONCE, SOLUTION FOR INJECTION (40MG/ML)
     Route: 031
     Dates: start: 20230418, end: 20230418

REACTIONS (1)
  - Death [Fatal]

NARRATIVE: CASE EVENT DATE: 20230401
